FAERS Safety Report 25490403 (Version 1)
Quarter: 2025Q2

REPORT INFORMATION
  Report Type: Spontaneous
  Country: JP (occurrence: JP)
  Receive Date: 20250628
  Receipt Date: 20250628
  Transmission Date: 20250716
  Serious: Yes (Life-Threatening, Hospitalization, Other)
  Sender: MANKIND PHARMA
  Company Number: JP-MankindUS-000425

PATIENT
  Age: 82 Year
  Sex: Male

DRUGS (1)
  1. BACLOFEN [Suspect]
     Active Substance: BACLOFEN
     Indication: Hiccups
     Dosage: LOW DOSE

REACTIONS (5)
  - Vomiting [Recovering/Resolving]
  - Depressed level of consciousness [Recovering/Resolving]
  - Dyskinesia [Recovering/Resolving]
  - Neurological symptom [Recovering/Resolving]
  - Toxicity to various agents [Unknown]
